FAERS Safety Report 19042555 (Version 1)
Quarter: 2021Q1

REPORT INFORMATION
  Report Type: Spontaneous
  Country: US (occurrence: US)
  Receive Date: 20210322
  Receipt Date: 20210322
  Transmission Date: 20210420
  Serious: Yes (Hospitalization)
  Sender: FDA-Public Use
  Company Number: None

PATIENT
  Age: 60 Year
  Sex: Male

DRUGS (7)
  1. LEFLUNOMIDE. [Concomitant]
     Active Substance: LEFLUNOMIDE
  2. METOPROLOL. [Concomitant]
     Active Substance: METOPROLOL
  3. LIPITOR [Concomitant]
     Active Substance: ATORVASTATIN CALCIUM
  4. GABAPENTIN. [Concomitant]
     Active Substance: GABAPENTIN
  5. TACROLIMUS. [Suspect]
     Active Substance: TACROLIMUS
     Indication: RENAL TRANSPLANT
     Route: 048
     Dates: start: 20160229
  6. PLAVIX [Concomitant]
     Active Substance: CLOPIDOGREL BISULFATE
  7. PREDNISONE. [Concomitant]
     Active Substance: PREDNISONE

REACTIONS (1)
  - Cardiac disorder [None]
